FAERS Safety Report 7242350-X (Version None)
Quarter: 2011Q1

REPORT INFORMATION
  Report Type: 
  Country: None (occurrence: None)
  Receive Date: 20110125
  Receipt Date: 20110120
  Transmission Date: 20110831
  Serious: No
  Sender: FDA-Public Use
  Company Number: US-BIOGENIDEC-2011BI002352

PATIENT
  Age: 67 Year
  Sex: Female

DRUGS (3)
  1. BACLOFEN [Concomitant]
     Indication: MUSCLE SPASMS
  2. AVONEX [Suspect]
     Indication: MULTIPLE SCLEROSIS
     Route: 030
  3. AVONEX [Suspect]
     Route: 030
     Dates: start: 20000101

REACTIONS (2)
  - MUSCLE SPASMS [None]
  - ABASIA [None]
